FAERS Safety Report 5562854-5 (Version None)
Quarter: 2007Q4

REPORT INFORMATION
  Report Type: 
  Country: None (occurrence: None)
  Receive Date: 20071217
  Receipt Date: 20071207
  Transmission Date: 20080405
  Serious: Yes (Other)
  Sender: FDA-Public Use
  Company Number: FR-GENENTECH-252502

PATIENT
  Sex: Female
  Weight: 80 kg

DRUGS (8)
  1. XOLAIR [Suspect]
     Indication: ASTHMA
     Dosage: 350 MG, 3/WEEK
     Route: 058
     Dates: start: 20070101
  2. XOLAIR [Suspect]
     Dosage: 300 MG, 2/WEEK
     Route: 058
     Dates: end: 20071001
  3. SOLUPRED [Suspect]
     Indication: DRUG USE FOR UNKNOWN INDICATION
     Dosage: 20 MG, QD
  4. SOLUPRED [Suspect]
     Dosage: 10 MG, QD
  5. INSULIN [Concomitant]
     Indication: TYPE 1 DIABETES MELLITUS
  6. FORADIL [Concomitant]
     Indication: DRUG USE FOR UNKNOWN INDICATION
  7. FLIXOTIDE [Concomitant]
     Indication: DRUG USE FOR UNKNOWN INDICATION
     Dosage: 500 MG, UNK
  8. KESTINE [Concomitant]
     Indication: DRUG USE FOR UNKNOWN INDICATION

REACTIONS (2)
  - TYPE 1 DIABETES MELLITUS [None]
  - WEIGHT INCREASED [None]
